FAERS Safety Report 6897832-7 (Version None)
Quarter: 2010Q3

REPORT INFORMATION
  Report Type: 
  Country: None (occurrence: None)
  Receive Date: 20100802
  Receipt Date: 20070718
  Transmission Date: 20110219
  Serious: No
  Sender: FDA-Public Use
  Company Number: US-PFIZER INC-2007060827

PATIENT
  Sex: Female
  Weight: 79.5 kg

DRUGS (7)
  1. LYRICA [Suspect]
     Indication: FIBROMYALGIA
     Route: 048
     Dates: start: 20070717
  2. VERAPAMIL [Concomitant]
  3. GLUCOPHAGE [Concomitant]
  4. CYMBALTA [Concomitant]
  5. ZOCOR [Concomitant]
  6. HERBAL NOS/MINERALS NOS [Concomitant]
  7. VITAMINS [Concomitant]

REACTIONS (4)
  - DIZZINESS [None]
  - FEELING DRUNK [None]
  - SPEECH DISORDER [None]
  - STUPOR [None]
